FAERS Safety Report 7049196-6 (Version None)
Quarter: 2010Q4

REPORT INFORMATION
  Report Type: 
  Country: None (occurrence: None)
  Receive Date: 20101018
  Receipt Date: 20101007
  Transmission Date: 20110411
  Serious: Yes (Other)
  Sender: FDA-Public Use
  Company Number: CA-JNJFOC-20101001421

PATIENT
  Sex: Female
  Weight: 61.4 kg

DRUGS (5)
  1. REMICADE [Suspect]
     Indication: COLITIS ULCERATIVE
     Dosage: 5 MG/KG AT WEEKS 0, 2, 6 AND THEN EVERY 8 WEEKS THEREAFTER.
     Route: 042
  2. BENADRYL [Concomitant]
     Indication: PREMEDICATION
  3. SOLU-CORTEF [Concomitant]
     Indication: PREMEDICATION
  4. METHOTREXATE [Concomitant]
  5. BUDESONIDE [Concomitant]

REACTIONS (10)
  - BLOOD PRESSURE DECREASED [None]
  - COLITIS ULCERATIVE [None]
  - FLUSHING [None]
  - GRANULOMA [None]
  - INFUSION RELATED REACTION [None]
  - MALAISE [None]
  - OSTEOPENIA [None]
  - PALPITATIONS [None]
  - RENAL FAILURE [None]
  - SERUM SICKNESS [None]
